FAERS Safety Report 6907121-X (Version None)
Quarter: 2010Q3

REPORT INFORMATION
  Report Type: 
  Country: None (occurrence: None)
  Receive Date: 20100804
  Receipt Date: 20090107
  Transmission Date: 20110219
  Serious: No
  Sender: FDA-Public Use
  Company Number: US-PFIZER INC-2009153449

PATIENT
  Sex: Male
  Weight: 92.986 kg

DRUGS (2)
  1. NARDIL [Suspect]
     Indication: DEPRESSION
     Route: 048
     Dates: start: 20020101
  2. SIMVASTATIN [Concomitant]

REACTIONS (1)
  - INSOMNIA [None]
